FAERS Safety Report 12328459 (Version 1)
Quarter: 2016Q2

REPORT INFORMATION
  Report Type: Spontaneous
  Country: US (occurrence: US)
  Receive Date: 20160503
  Receipt Date: 20160503
  Transmission Date: 20160815
  Serious: No
  Sender: FDA-Public Use
  Company Number: US-BEH-2014047653

PATIENT
  Sex: Female
  Weight: 94 kg

DRUGS (42)
  1. CYMBALTA [Concomitant]
     Active Substance: DULOXETINE HYDROCHLORIDE
  2. DIFLUCAN [Concomitant]
     Active Substance: FLUCONAZOLE
  3. DIFLUCAN [Concomitant]
     Active Substance: FLUCONAZOLE
  4. SINGULAIR [Concomitant]
     Active Substance: MONTELUKAST SODIUM
  5. LASIX [Concomitant]
     Active Substance: FUROSEMIDE
  6. NYSTATIN. [Concomitant]
     Active Substance: NYSTATIN
  7. PREVACID [Concomitant]
     Active Substance: LANSOPRAZOLE
  8. SYNTHROID [Concomitant]
     Active Substance: LEVOTHYROXINE SODIUM
  9. FIORICET [Concomitant]
     Active Substance: ACETAMINOPHEN\BUTALBITAL\CAFFEINE
  10. ATACAND [Concomitant]
     Active Substance: CANDESARTAN CILEXETIL
  11. OXYCODONE [Concomitant]
     Active Substance: OXYCODONE
  12. TOPAMAX [Concomitant]
     Active Substance: TOPIRAMATE
  13. TIZANIDINE. [Concomitant]
     Active Substance: TIZANIDINE
  14. HIZENTRA [Suspect]
     Active Substance: HUMAN IMMUNOGLOBULIN G
     Indication: IMMUNODEFICIENCY COMMON VARIABLE
     Dosage: 2 GM 10 ML VIAL; 10 GM WEEKLY
     Route: 058
  15. HYDROXYZINE [Concomitant]
     Active Substance: HYDROXYZINE\HYDROXYZINE HYDROCHLORIDE
  16. SULFACETAMIDE. [Concomitant]
     Active Substance: SULFACETAMIDE
  17. OXYGEN. [Concomitant]
     Active Substance: OXYGEN
  18. CARAFATE [Concomitant]
     Active Substance: SUCRALFATE
  19. XANAX [Concomitant]
     Active Substance: ALPRAZOLAM
  20. REMERON [Concomitant]
     Active Substance: MIRTAZAPINE
  21. METHADONE [Concomitant]
     Active Substance: METHADONE HYDROCHLORIDE
  22. DOXYCYCLINE. [Concomitant]
     Active Substance: DOXYCYCLINE
  23. CLARITIN [Concomitant]
     Active Substance: LORATADINE
  24. HIZENTRA [Suspect]
     Active Substance: HUMAN IMMUNOGLOBULIN G
     Dosage: 4 GM 20 ML VIAL; 10 GM WEEKLY
     Route: 058
  25. FLOVENT [Concomitant]
     Active Substance: FLUTICASONE PROPIONATE
  26. ZYRTEC [Concomitant]
     Active Substance: CETIRIZINE HYDROCHLORIDE
  27. KLONOPIN [Concomitant]
     Active Substance: CLONAZEPAM
  28. SPIRONOLACTONE. [Concomitant]
     Active Substance: SPIRONOLACTONE
  29. DIPHENHYDRAMINE. [Concomitant]
     Active Substance: DIPHENHYDRAMINE
  30. LMX [Concomitant]
     Active Substance: LIDOCAINE
  31. GLIMEPIRIDE. [Concomitant]
     Active Substance: GLIMEPIRIDE
  32. TYLENOL [Concomitant]
     Active Substance: ACETAMINOPHEN
  33. BENADRYL [Concomitant]
     Active Substance: DIPHENHYDRAMINE HYDROCHLORIDE
  34. OPANA [Concomitant]
     Active Substance: OXYMORPHONE HYDROCHLORIDE
  35. ADVAIR HFA [Concomitant]
     Active Substance: FLUTICASONE PROPIONATE\SALMETEROL XINAFOATE
  36. PEPCID [Concomitant]
     Active Substance: FAMOTIDINE
  37. LANTUS [Concomitant]
     Active Substance: INSULIN GLARGINE
  38. FERROUS SULFATE. [Concomitant]
     Active Substance: FERROUS SULFATE
  39. POTASSIUM CL [Concomitant]
     Active Substance: POTASSIUM CHLORIDE
  40. EPIPEN [Concomitant]
     Active Substance: EPINEPHRINE
  41. PRILOSEC [Concomitant]
     Active Substance: OMEPRAZOLE MAGNESIUM
  42. ASTELIN [Concomitant]
     Active Substance: AZELASTINE HYDROCHLORIDE

REACTIONS (2)
  - Administration site pruritus [Recovering/Resolving]
  - Fatigue [Recovering/Resolving]
